FAERS Safety Report 7131913-8 (Version None)
Quarter: 2010Q4

REPORT INFORMATION
  Report Type: 
  Country: None (occurrence: None)
  Receive Date: 20101202
  Receipt Date: 20100927
  Transmission Date: 20110411
  Serious: No
  Sender: FDA-Public Use
  Company Number: AU-JNJFOC-20101000117

PATIENT
  Sex: Female

DRUGS (3)
  1. STELARA [Suspect]
     Indication: PSORIASIS
     Route: 058
  2. CALCIUM [Concomitant]
  3. BETAMETHASONE [Concomitant]
     Route: 061

REACTIONS (1)
  - KIDNEY INFECTION [None]
